FAERS Safety Report 10009707 (Version 1)
Quarter: 2014Q1

REPORT INFORMATION
  Report Type: Spontaneous
  Country: US (occurrence: US)
  Receive Date: 20140312
  Receipt Date: 20140312
  Transmission Date: 20141002
  Serious: No
  Sender: FDA-Public Use
  Company Number: US-INCYTE CORPORATION-2012IN002666

PATIENT
  Age: 62 Year
  Sex: Female

DRUGS (2)
  1. JAKAFI [Suspect]
     Dosage: 15 MG, BID
     Route: 048
     Dates: start: 20111224
  2. HYDREA [Concomitant]

REACTIONS (2)
  - Splenomegaly [Unknown]
  - Therapeutic response unexpected [Unknown]
